FAERS Safety Report 5128187-6 (Version None)
Quarter: 2006Q4

REPORT INFORMATION
  Report Type: 
  Country: None (occurrence: None)
  Receive Date: 20061011
  Receipt Date: 20060728
  Transmission Date: 20070319
  Serious: Yes (Death)
  Sender: FDA-Public Use
  Company Number: 060724-0000710

PATIENT

DRUGS (3)
  1. DACTINOMYCIN [Suspect]
     Indication: NEPHROBLASTOMA
     Dosage: IV
     Route: 042
  2. CYCLOPHOSPHAMIDE [Suspect]
     Indication: NEPHROBLASTOMA
     Dosage: IV
     Route: 042
  3. VINCRISTINE SULFATE [Suspect]
     Indication: NEPHROBLASTOMA
     Dosage: IV
     Route: 042

REACTIONS (1)
  - VENOOCCLUSIVE DISEASE [None]
